FAERS Safety Report 12676264 (Version 2)
Quarter: 2016Q4

REPORT INFORMATION
  Report Type: Report from Study
  Country: US (occurrence: US)
  Receive Date: 20160823
  Receipt Date: 20161010
  Transmission Date: 20170207
  Serious: No
  Sender: FDA-Public Use
  Company Number: US-AMGEN-USASP2016107474

PATIENT
  Age: 65 Year
  Sex: Female

DRUGS (1)
  1. ENBREL [Suspect]
     Active Substance: ETANERCEPT
     Indication: RHEUMATOID ARTHRITIS
     Dosage: 50 MG, EVERY 7 DAYS
     Route: 058

REACTIONS (6)
  - Feeling abnormal [Unknown]
  - Myalgia [Recovering/Resolving]
  - Peripheral swelling [Recovered/Resolved]
  - Drug effect decreased [Unknown]
  - Vitamin D decreased [Unknown]
  - Condition aggravated [Unknown]
